FAERS Safety Report 5585141-8 (Version None)
Quarter: 2008Q1

REPORT INFORMATION
  Report Type: 
  Country: None (occurrence: None)
  Receive Date: 20080109
  Receipt Date: 20080102
  Transmission Date: 20080703
  Serious: Yes (Other)
  Sender: FDA-Public Use
  Company Number: DE-ROXANE LABORATORIES, INC-2008-BP-00013RO

PATIENT
  Age: 36 Year
  Sex: Female
  Weight: 120 kg

DRUGS (10)
  1. AZATHIOPRINE [Suspect]
     Indication: CROHN'S DISEASE
  2. METHOTREXATE [Suspect]
     Indication: CROHN'S DISEASE
     Route: 030
  3. PREDNISOLONE [Suspect]
     Indication: CROHN'S DISEASE
  4. FOLIC ACID [Suspect]
     Indication: CROHN'S DISEASE
     Route: 048
  5. CEFTRIAXONE [Concomitant]
     Indication: PNEUMONIA
  6. AMPHOTERICIN B [Concomitant]
     Indication: PNEUMONIA
     Route: 061
  7. COTRIM [Concomitant]
     Indication: INFECTION
  8. IMIPENEM [Concomitant]
     Indication: INFECTION
  9. LEVOFLOXACIN [Concomitant]
     Indication: INFECTION
  10. FLUCONAZOLE [Concomitant]
     Indication: INFECTION

REACTIONS (3)
  - HEPATITIS [None]
  - PNEUMONITIS [None]
  - STOMATITIS [None]
